FAERS Safety Report 23540188 (Version 3)
Quarter: 2024Q2

REPORT INFORMATION
  Report Type: Spontaneous
  Country: CA (occurrence: CA)
  Receive Date: 20240219
  Receipt Date: 20240621
  Transmission Date: 20240716
  Serious: Yes (Other)
  Sender: FDA-Public Use
  Company Number: CA-ANIPHARMA-2024-CA-001091

PATIENT
  Age: 62 Year
  Sex: Female
  Weight: 111 kg

DRUGS (11)
  1. ANASTROZOLE [Suspect]
     Active Substance: ANASTROZOLE
     Indication: Hormone therapy
     Route: 065
  2. METFORMIN [Concomitant]
     Active Substance: METFORMIN HYDROCHLORIDE
     Dosage: 850 MG Q8H
     Route: 048
  3. ARTHROTEC [Concomitant]
     Active Substance: DICLOFENAC SODIUM\MISOPROSTOL
  4. CONTRAVE [Suspect]
     Active Substance: BUPROPION HYDROCHLORIDE\NALTREXONE HYDROCHLORIDE
     Dosage: 1 DF QD / 1 DF Q12H / 1 DF QOD
     Route: 048
  5. FERRIC POLYSACCHARIDE COMPLEX [Suspect]
     Active Substance: FERRIC POLYSACCHARIDE COMPLEX
     Route: 048
  6. SEMAGLUTIDE [Suspect]
     Active Substance: SEMAGLUTIDE
     Route: 065
  7. FILGRASTIM [Concomitant]
     Active Substance: FILGRASTIM
     Route: 058
  8. GABAPENTIN [Concomitant]
     Active Substance: GABAPENTIN
     Route: 048
  9. GLICLAZIDE [Suspect]
     Active Substance: GLICLAZIDE
     Route: 048
  10. IRBESARTAN [Concomitant]
     Active Substance: IRBESARTAN
     Route: 048
  11. JANUVIA [Concomitant]
     Active Substance: SITAGLIPTIN PHOSPHATE
     Dosage: 100 MG QD
     Route: 048

REACTIONS (70)
  - Abdominal distension [Unknown]
  - Calcinosis [Unknown]
  - Constipation [Unknown]
  - Cough [Unknown]
  - Depression [Unknown]
  - Dermatitis [Unknown]
  - Device related infection [Unknown]
  - Diarrhoea [Unknown]
  - Diffuse idiopathic skeletal hyperostosis [Unknown]
  - Disturbance in attention [Unknown]
  - Dizziness [Unknown]
  - Abnormal dreams [Unknown]
  - Dry skin [Unknown]
  - Dyspepsia [Unknown]
  - Erythema [Unknown]
  - Feeling abnormal [Unknown]
  - Flatulence [Unknown]
  - Fluid retention [Unknown]
  - Gastrointestinal sounds abnormal [Unknown]
  - Glycosylated haemoglobin increased [Unknown]
  - Haemoglobin decreased [Unknown]
  - Hallucination, auditory [Unknown]
  - Anxiety [Unknown]
  - Headache [Unknown]
  - Hypoaesthesia [Unknown]
  - Hypoglycaemia [Unknown]
  - Lymphoedema [Unknown]
  - Menopausal symptoms [Unknown]
  - Nasopharyngitis [Unknown]
  - Nausea [Unknown]
  - Nervousness [Unknown]
  - Neutrophil count decreased [Unknown]
  - Nightmare [Unknown]
  - Arteriosclerosis [Unknown]
  - Nocturia [Unknown]
  - Pain in extremity [Unknown]
  - Paraesthesia [Unknown]
  - Poor quality sleep [Unknown]
  - Pruritus [Unknown]
  - Radiation associated pain [Unknown]
  - Rotator cuff syndrome [Unknown]
  - Serum ferritin decreased [Unknown]
  - Skin exfoliation [Unknown]
  - Somnolence [Unknown]
  - Arthritis [Unknown]
  - Synovial cyst [Unknown]
  - Tremor [Unknown]
  - Urinary retention [Unknown]
  - Visual impairment [Unknown]
  - Weight increased [Unknown]
  - Treatment noncompliance [Unknown]
  - Therapy cessation [Unknown]
  - Product dose omission issue [Unknown]
  - Inappropriate schedule of product administration [Unknown]
  - Back pain [Unknown]
  - Anaemia [Not Recovered/Not Resolved]
  - Fatigue [Not Recovered/Not Resolved]
  - Sleep disorder [Unknown]
  - Therapy interrupted [Unknown]
  - Trigger finger [Unknown]
  - Treatment noncompliance [Unknown]
  - Therapy cessation [Unknown]
  - Product dose omission issue [Unknown]
  - Inappropriate schedule of product administration [Unknown]
  - Illness [Unknown]
  - Blood glucose increased [Unknown]
  - Hot flush [Unknown]
  - Blood glucose fluctuation [Unknown]
  - Blood iron decreased [Unknown]
  - Breast cancer [Unknown]
